FAERS Safety Report 8214628-4 (Version None)
Quarter: 2012Q1

REPORT INFORMATION
  Report Type: 
  Country: None (occurrence: None)
  Receive Date: 20120316
  Receipt Date: 20120308
  Transmission Date: 20120608
  Serious: Yes (Hospitalization)
  Sender: FDA-Public Use
  Company Number: US-BAYER-201026678NA

PATIENT
  Age: 31 Year
  Sex: Female
  Weight: 84 kg

DRUGS (8)
  1. YAZ [Suspect]
     Dosage: UNK UNK, QD
     Route: 048
     Dates: start: 20070101, end: 20091201
  2. LITHIUM CARBONATE [Concomitant]
  3. GABAPENTIN [Concomitant]
     Dosage: UNK
     Dates: start: 20091204
  4. ATENOLOL [Concomitant]
  5. ALPRAZOLAM [Concomitant]
  6. TRAZODONE HCL [Concomitant]
  7. CITALOPRAM HYDROBROMIDE [Concomitant]
  8. M.V.I. [Concomitant]

REACTIONS (1)
  - PULMONARY EMBOLISM [None]
